FAERS Safety Report 12803610 (Version 2)
Quarter: 2016Q4

REPORT INFORMATION
  Report Type: Spontaneous
  Country: US (occurrence: US)
  Receive Date: 20161003
  Receipt Date: 20161020
  Transmission Date: 20170207
  Serious: No
  Sender: FDA-Public Use
  Company Number: US-TEVA-698041USA

PATIENT
  Age: 43 Year
  Sex: Male

DRUGS (12)
  1. DEXAMETHASONE. [Concomitant]
     Active Substance: DEXAMETHASONE
  2. IBUPROFEN. [Concomitant]
     Active Substance: IBUPROFEN
  3. LOVASTATIN. [Concomitant]
     Active Substance: LOVASTATIN
  4. MULTIVITAMIN [Concomitant]
     Active Substance: VITAMINS
  5. FISH OIL [Concomitant]
     Active Substance: FISH OIL
  6. VITAMIN D [Concomitant]
     Active Substance: CHOLECALCIFEROL
  7. LEVITRA [Concomitant]
     Active Substance: VARDENAFIL HYDROCHLORIDE TRIHYDRATE
  8. COPAXONE [Suspect]
     Active Substance: GLATIRAMER ACETATE
     Indication: MULTIPLE SCLEROSIS
     Route: 058
     Dates: start: 20160107
  9. COPAXONE [Suspect]
     Active Substance: GLATIRAMER ACETATE
     Indication: MYELITIS TRANSVERSE
     Route: 058
     Dates: start: 201508
  10. NICOTINE TD [Concomitant]
  11. SPIRONOLACTONE. [Concomitant]
     Active Substance: SPIRONOLACTONE
  12. ESTRADIOL. [Concomitant]
     Active Substance: ESTRADIOL

REACTIONS (7)
  - Product use issue [Unknown]
  - Balance disorder [Unknown]
  - Dizziness [Unknown]
  - Hypotension [Unknown]
  - Ligament sprain [Unknown]
  - Hypoaesthesia [Unknown]
  - Rib fracture [Unknown]

NARRATIVE: CASE EVENT DATE: 201608
